FAERS Safety Report 4524266-2 (Version None)
Quarter: 2004Q4

REPORT INFORMATION
  Report Type: 
  Country: None (occurrence: None)
  Receive Date: 20041119
  Receipt Date: 20041026
  Transmission Date: 20050328
  Serious: No
  Sender: FDA-Public Use
  Company Number: 209964

PATIENT
  Age: 76 Year
  Sex: Male
  Weight: 58 kg

DRUGS (2)
  1. RAPTIVA [Suspect]
     Indication: PSORIASIS
     Dosage: 0.4 ML, 1/WEEK, SUBCUTANEOUS
     Route: 058
     Dates: start: 20041025
  2. INSULIN [Concomitant]

REACTIONS (1)
  - BLOOD GLUCOSE INCREASED [None]
